FAERS Safety Report 19574780 (Version 1)
Quarter: 2021Q3

REPORT INFORMATION
  Report Type: Spontaneous
  Country: US (occurrence: US)
  Receive Date: 20210719
  Receipt Date: 20210719
  Transmission Date: 20211014
  Serious: Yes (Hospitalization, Other)
  Sender: FDA-Public Use
  Company Number: US-VISTAPHARM, INC.-VER202107-001632

PATIENT
  Age: 1 Month
  Sex: Female

DRUGS (3)
  1. AMPICILLIN [Concomitant]
     Active Substance: AMPICILLIN
     Indication: SEPSIS
     Dosage: UNKNOWN
  2. CEFOTAXIME [Concomitant]
     Active Substance: CEFOTAXIME SODIUM
     Indication: SEPSIS
     Dosage: UNKNOWN
  3. PHENYTOIN. [Suspect]
     Active Substance: PHENYTOIN
     Indication: SEIZURE
     Dosage: 2.5 CC (30 MG/5 ML)
     Route: 048

REACTIONS (6)
  - Product prescribing error [Unknown]
  - Depressed level of consciousness [Recovered/Resolved]
  - Abdominal distension [Recovered/Resolved]
  - Toxicity to various agents [Recovered/Resolved]
  - Lethargy [Unknown]
  - Hypothermia [Unknown]
